FAERS Safety Report 9320286 (Version 4)
Quarter: 2014Q2

REPORT INFORMATION
  Report Type: Spontaneous
  Country: US (occurrence: US)
  Receive Date: 20130530
  Receipt Date: 20140613
  Transmission Date: 20141212
  Serious: Yes (Other)
  Sender: FDA-Public Use
  Company Number: CHPA2013US009098

PATIENT
  Age: 85 Year
  Sex: Female

DRUGS (6)
  1. PREVACID 24HR 15MG [Suspect]
     Indication: GASTROOESOPHAGEAL REFLUX DISEASE
     Dosage: 15 MG, QD
     Route: 048
  2. PREVACID 24HR 15MG [Suspect]
     Indication: PROPHYLAXIS
     Dosage: 15 MG, QD
  3. PREVACID 24HR 15MG [Suspect]
     Indication: OFF LABEL USE
     Dosage: 15 MG, QD
  4. PREDNISONE [Concomitant]
  5. FERROUS GLUCONATE [Concomitant]
     Indication: ANAEMIA
     Dosage: 1 DF, QD
  6. FERROUS GLUCONATE [Concomitant]
     Dosage: 1 DF, BID

REACTIONS (6)
  - Lung infection [Not Recovered/Not Resolved]
  - Asthenia [Not Recovered/Not Resolved]
  - Cough [Not Recovered/Not Resolved]
  - Condition aggravated [Not Recovered/Not Resolved]
  - Incorrect drug administration duration [Unknown]
  - Therapeutic response changed [Unknown]
